FAERS Safety Report 9705719 (Version 1)
Quarter: 2013Q4

REPORT INFORMATION
  Report Type: Spontaneous
  Country: US (occurrence: US)
  Receive Date: 20131122
  Receipt Date: 20131122
  Transmission Date: 20140711
  Serious: No
  Sender: FDA-Public Use
  Company Number: US-GILEAD-2008-0017798

PATIENT
  Sex: Female
  Weight: 58.97 kg

DRUGS (12)
  1. LETAIRIS [Suspect]
     Indication: PULMONARY ARTERIAL HYPERTENSION
     Route: 048
     Dates: start: 20080430, end: 20080729
  2. COREG [Concomitant]
     Route: 048
  3. SIMVASTATIN [Concomitant]
     Route: 048
  4. HYDROCHLOROTHIAZIDE [Concomitant]
     Route: 048
  5. ASPIRIN [Concomitant]
     Route: 048
  6. LEXAPRO [Concomitant]
     Route: 048
  7. PLAVIX [Concomitant]
     Route: 048
  8. LYRICA [Concomitant]
     Route: 048
  9. ALLEGRA [Concomitant]
     Route: 048
  10. TIZANIDINE [Concomitant]
     Route: 048
  11. TRAMADOL [Concomitant]
     Route: 048
  12. EVOXAC [Concomitant]
     Route: 048

REACTIONS (1)
  - Hypotension [None]
